FAERS Safety Report 8480201-6 (Version None)
Quarter: 2012Q2

REPORT INFORMATION
  Report Type: 
  Country: None (occurrence: None)
  Receive Date: 20120629
  Receipt Date: 20120627
  Transmission Date: 20120825
  Serious: Yes (Hospitalization)
  Sender: FDA-Public Use
  Company Number: US-MERCK-1203USA00790

PATIENT
  Age: 77 Year
  Sex: Female

DRUGS (10)
  1. FOSAMAX [Suspect]
     Indication: BONE DENSITY DECREASED
     Route: 048
     Dates: start: 20050101
  2. LOVAZA [Concomitant]
     Route: 065
     Dates: start: 19900101
  3. ACTONEL [Suspect]
     Indication: BONE DENSITY DECREASED
     Route: 048
     Dates: start: 20090101
  4. ASCORBIC ACID [Concomitant]
     Route: 065
     Dates: start: 19900101
  5. XANTHOPHYLL [Concomitant]
     Route: 065
     Dates: start: 19900101
  6. VITAMIN D (UNSPECIFIED) [Concomitant]
     Route: 065
     Dates: start: 19900101
  7. FOSAMAX [Suspect]
     Route: 048
     Dates: start: 20040101, end: 20090101
  8. MAGNESIUM (UNSPECIFIED) [Concomitant]
     Route: 065
     Dates: start: 19900101
  9. VITAMIN B (UNSPECIFIED) [Concomitant]
     Route: 065
     Dates: start: 19900101
  10. CALCIUM CITRATE [Concomitant]
     Route: 065
     Dates: start: 19900101

REACTIONS (3)
  - FEMUR FRACTURE [None]
  - TOOTH DISORDER [None]
  - HYPERTENSION [None]
